FAERS Safety Report 18845532 (Version 1)
Quarter: 2021Q1

REPORT INFORMATION
  Report Type: Report from Study
  Country: US (occurrence: US)
  Receive Date: 20210203
  Receipt Date: 20210203
  Transmission Date: 20210419
  Serious: No
  Sender: FDA-Public Use
  Company Number: US-EXELIXIS-CABO-20030859

PATIENT
  Sex: Male

DRUGS (1)
  1. CABOMETYX [Suspect]
     Active Substance: CABOZANTINIB S-MALATE
     Indication: RENAL CELL CARCINOMA
     Dosage: 20 MG, QD
     Route: 048

REACTIONS (6)
  - Constipation [Unknown]
  - Asthenia [Unknown]
  - Blood pressure increased [Unknown]
  - Anaemia [Unknown]
  - Erythema [Unknown]
  - Renal impairment [Unknown]
